FAERS Safety Report 9969810 (Version 1)
Quarter: 2014Q1

REPORT INFORMATION
  Report Type: Spontaneous
  Country: IT (occurrence: IT)
  Receive Date: 20140306
  Receipt Date: 20140306
  Transmission Date: 20141002
  Serious: Yes (Hospitalization)
  Sender: FDA-Public Use
  Company Number: IT-009507513-1402ITA013433

PATIENT
  Age: 23 Year
  Sex: Female

DRUGS (3)
  1. TRIMETON [Suspect]
     Indication: URTICARIA
     Dosage: CONCENTRATION-10MG/1ML, QD
     Route: 030
     Dates: start: 20140219, end: 20140219
  2. BENTELAN [Concomitant]
  3. LEVETIRACETAM [Concomitant]

REACTIONS (1)
  - Convulsion [Recovered/Resolved]
